FAERS Safety Report 7288050-1 (Version None)
Quarter: 2011Q1

REPORT INFORMATION
  Report Type: 
  Country: None (occurrence: None)
  Receive Date: 20110207
  Receipt Date: 20110207
  Transmission Date: 20110831
  Serious: Yes (Disabling)
  Sender: FDA-Public Use
  Company Number: None

PATIENT
  Sex: Female
  Weight: 92.0802 kg

DRUGS (1)
  1. TETRACYCLINE [Suspect]
     Indication: ACNE
     Dosage: 1 CAPSULE BID PO
     Route: 048
     Dates: start: 20100426, end: 20100611

REACTIONS (2)
  - PAPILLOEDEMA [None]
  - BLINDNESS TRANSIENT [None]
